FAERS Safety Report 7208555-9 (Version None)
Quarter: 2011Q1

REPORT INFORMATION
  Report Type: 
  Country: None (occurrence: None)
  Receive Date: 20110104
  Receipt Date: 20101227
  Transmission Date: 20110831
  Serious: Yes (Death)
  Sender: FDA-Public Use
  Company Number: US-JNJFOC-20080706746

PATIENT
  Age: 43 Year
  Sex: Female
  Weight: 76.2 kg

DRUGS (5)
  1. DURAGESIC-50 [Suspect]
     Indication: ILL-DEFINED DISORDER
     Route: 062
  2. CARISOPRODOL [Concomitant]
  3. MEPROBAMATE [Concomitant]
  4. FENTANYL-100 [Suspect]
     Indication: ILL-DEFINED DISORDER
     Route: 062
  5. PERCOCET [Concomitant]

REACTIONS (3)
  - DRUG ABUSE [None]
  - ASPIRATION [None]
  - DIZZINESS [None]
